FAERS Safety Report 5113731-5 (Version None)
Quarter: 2006Q3

REPORT INFORMATION
  Report Type: 
  Country: None (occurrence: None)
  Receive Date: 20060921
  Receipt Date: 20060921
  Transmission Date: 20061208
  Serious: Yes (Hospitalization)
  Sender: FDA-Public Use
  Company Number: None

PATIENT
  Sex: Female
  Weight: 98 kg

DRUGS (11)
  1. COUMADIN [Suspect]
     Indication: COAGULOPATHY
     Dosage: 1MG DAILY PO
     Route: 048
  2. TISSUE PLASMINOGEN ACTIVATOR [Concomitant]
  3. RANITIDINE [Concomitant]
  4. SIMETHICONE [Concomitant]
  5. SIMVASTATIN [Concomitant]
  6. MEGESTROL ACETATE [Concomitant]
  7. MIRTAZAPRINE [Concomitant]
  8. NEPHROCAP ASP [Concomitant]
  9. DOCUSATE [Concomitant]
  10. GABAPENTIN [Concomitant]
  11. MG SULFATE [Concomitant]

REACTIONS (2)
  - ACTIVATED PARTIAL THROMBOPLASTIN TIME PROLONGED [None]
  - RECTAL HAEMORRHAGE [None]
